FAERS Safety Report 9015923 (Version 2)
Quarter: 2013Q2

REPORT INFORMATION
  Report Type: Spontaneous
  Country: DK (occurrence: DK)
  Receive Date: 20130116
  Receipt Date: 20130408
  Transmission Date: 20140414
  Serious: Yes (Hospitalization)
  Sender: FDA-Public Use
  Company Number: DK-NOVOPROD-368220

PATIENT
  Age: 68 Year
  Sex: Female
  Weight: 70 kg

DRUGS (11)
  1. VICTOZA [Suspect]
     Indication: DIABETES MELLITUS
     Dosage: 1.2 MG, QD
     Route: 058
     Dates: start: 201010, end: 20121220
  2. SPIRIVA [Concomitant]
     Indication: CHRONIC OBSTRUCTIVE PULMONARY DISEASE
  3. SYMBICORT FORTE TURBOHALER [Concomitant]
     Indication: CHRONIC OBSTRUCTIVE PULMONARY DISEASE
  4. NOVOMIX 30 FLEXPEN [Concomitant]
  5. AMLODIPIN ^ACTAVIS^ [Concomitant]
     Indication: HYPERTENSION
  6. ANCOZAN [Concomitant]
     Indication: HYPERTENSION
  7. CENTYL MED KALIUMKLORID [Concomitant]
     Indication: HYPERTENSION
  8. LANSOPRAZOL [Concomitant]
     Indication: GASTROOESOPHAGEAL REFLUX DISEASE
  9. METFORMIN ^ACTAVIS^ [Concomitant]
     Indication: DIABETES MELLITUS
  10. NOVOFEM [Concomitant]
     Indication: HORMONE THERAPY
  11. SIMVASTATIN [Concomitant]
     Indication: HYPERCHOLESTEROLAEMIA

REACTIONS (4)
  - Hypokalaemia [Not Recovered/Not Resolved]
  - Diarrhoea [Recovered/Resolved]
  - Dehydration [Recovered/Resolved]
  - Vomiting [Recovered/Resolved]
